FAERS Safety Report 8869863 (Version 4)
Quarter: 2013Q3

REPORT INFORMATION
  Report Type: Report from Study
  Country: US (occurrence: US)
  Receive Date: 20121028
  Receipt Date: 20130708
  Transmission Date: 20140515
  Serious: Yes (Other)
  Sender: FDA-Public Use
  Company Number: US-US-EMD SERONO, INC.-7169423

PATIENT
  Age: 62 Year
  Sex: Female
  Weight: 47 kg

DRUGS (1)
  1. REBIF [Suspect]
     Indication: MULTIPLE SCLEROSIS
     Route: 058
     Dates: start: 20110715

REACTIONS (4)
  - Cataract [Recovered/Resolved]
  - Optic neuritis [Recovering/Resolving]
  - Abdominal discomfort [Unknown]
  - Fatigue [Not Recovered/Not Resolved]
